FAERS Safety Report 10255700 (Version 2)
Quarter: 2014Q3

REPORT INFORMATION
  Report Type: Spontaneous
  Country: IT (occurrence: IT)
  Receive Date: 20140624
  Receipt Date: 20140703
  Transmission Date: 20150326
  Serious: Yes (Other)
  Sender: FDA-Public Use
  Company Number: IT-TEVA-489255ISR

PATIENT
  Age: 28 Year
  Sex: Male
  Weight: 98 kg

DRUGS (2)
  1. OLANZAPINA TEVA 10 MG [Suspect]
     Active Substance: OLANZAPINE
     Indication: PSYCHOTIC DISORDER
     Dosage: 10 MILLIGRAM DAILY;
     Route: 048
     Dates: start: 20140101, end: 20140315
  2. DEPAKIN CHRONO 500 MG [Concomitant]
     Active Substance: VALPROIC ACID
     Dosage: 500 MILLIGRAM DAILY;
     Route: 048
     Dates: start: 20050301

REACTIONS (4)
  - Anxiety [Recovered/Resolved]
  - Aggression [Recovered/Resolved]
  - Psychomotor hyperactivity [Recovered/Resolved]
  - Product substitution issue [Recovered/Resolved]

NARRATIVE: CASE EVENT DATE: 20140115
